FAERS Safety Report 4834569-X (Version None)
Quarter: 2005Q4

REPORT INFORMATION
  Report Type: 
  Country: None (occurrence: None)
  Receive Date: 20051122
  Receipt Date: 20050404
  Transmission Date: 20060501
  Serious: No
  Sender: FDA-Public Use
  Company Number: US-BRISTOL-MYERS SQUIBB COMPANY-12920328

PATIENT
  Age: 74 Year
  Sex: Female

DRUGS (5)
  1. PRAVACHOL [Suspect]
     Indication: CEREBROVASCULAR ACCIDENT PROPHYLAXIS
     Route: 048
  2. GLUCOPHAGE [Concomitant]
  3. ECOTRIN [Concomitant]
  4. ADVAIR DISKUS 100/50 [Concomitant]
  5. COZAAR [Concomitant]

REACTIONS (1)
  - ALOPECIA [None]
